FAERS Safety Report 15988404 (Version 1)
Quarter: 2019Q1

REPORT INFORMATION
  Report Type: Report from Study
  Country: ZA (occurrence: ZA)
  Receive Date: 20190221
  Receipt Date: 20190221
  Transmission Date: 20190418
  Serious: Yes (Hospitalization, Other)
  Sender: FDA-Public Use
  Company Number: ZA-ROCHE-2262367

PATIENT
  Age: 75 Year
  Sex: Female
  Weight: 74 kg

DRUGS (1)
  1. ACTEMRA [Suspect]
     Active Substance: TOCILIZUMAB
     Indication: RHEUMATOID ARTHRITIS
     Route: 042
     Dates: start: 201306

REACTIONS (8)
  - Liver function test increased [Unknown]
  - Pelvic fracture [Unknown]
  - Hernia [Recovered/Resolved]
  - Rheumatoid arthritis [Unknown]
  - Intestinal obstruction [Recovered/Resolved]
  - Blood glucose increased [Unknown]
  - Cerebrovascular accident [Recovered/Resolved]
  - Osteoarthritis [Unknown]

NARRATIVE: CASE EVENT DATE: 20150512
